FAERS Safety Report 14829744 (Version 2)
Quarter: 2018Q2

REPORT INFORMATION
  Report Type: Report from Study
  Country: US (occurrence: US)
  Receive Date: 20180430
  Receipt Date: 20180514
  Transmission Date: 20180711
  Serious: Yes (Death, Life-Threatening, Hospitalization, Other)
  Sender: FDA-Public Use
  Company Number: US-BRISTOL-MYERS SQUIBB COMPANY-BMS-2018-039165

PATIENT
  Age: 36 Year
  Sex: Female
  Weight: 81 kg

DRUGS (1)
  1. BELATACEPT [Suspect]
     Active Substance: BELATACEPT
     Indication: RENAL TRANSPLANT
     Dosage: 425 MG, QMO
     Route: 042
     Dates: start: 20161019

REACTIONS (6)
  - Diabetic ketoacidosis [Unknown]
  - Cardiac arrest [Fatal]
  - Shock [Unknown]
  - Renal impairment [Unknown]
  - Pain in extremity [Unknown]
  - Blastomycosis [Unknown]

NARRATIVE: CASE EVENT DATE: 20180419
